FAERS Safety Report 7250830-6 (Version None)
Quarter: 2011Q1

REPORT INFORMATION
  Report Type: 
  Country: None (occurrence: None)
  Receive Date: 20110128
  Receipt Date: 20110118
  Transmission Date: 20110831
  Serious: Yes (Other)
  Sender: FDA-Public Use
  Company Number: US-PERRIGO-11US000479

PATIENT
  Age: 27 Year
  Sex: Male
  Weight: 90.249 kg

DRUGS (1)
  1. IBUPROFEN 200MG-DIPHENHYDRAMINE CITRATE 38 MG 8K7 [Suspect]
     Indication: SLEEP DISORDER
     Dosage: 1/2 - 1 TABLET
     Route: 048
     Dates: start: 20100501, end: 20110116

REACTIONS (12)
  - PSYCHOMOTOR SKILLS IMPAIRED [None]
  - HEADACHE [None]
  - NIGHTMARE [None]
  - ABDOMINAL DISCOMFORT [None]
  - AGITATION [None]
  - AMNESIA [None]
  - BRADYCARDIA [None]
  - INSOMNIA [None]
  - STARING [None]
  - DISSOCIATION [None]
  - ABNORMAL DREAMS [None]
  - WITHDRAWAL SYNDROME [None]
